FAERS Safety Report 23559474 (Version 1)
Quarter: 2024Q1

REPORT INFORMATION
  Report Type: Spontaneous
  Country: GB (occurrence: GB)
  Receive Date: 20240223
  Receipt Date: 20240223
  Transmission Date: 20240409
  Serious: Yes (Other)
  Sender: FDA-Public Use
  Company Number: None

PATIENT
  Age: 71 Year
  Sex: Male
  Weight: 79 kg

DRUGS (11)
  1. FUROSEMIDE [Suspect]
     Active Substance: FUROSEMIDE
     Indication: Ill-defined disorder
     Route: 065
     Dates: start: 20240219
  2. ATORVASTATIN [Concomitant]
     Active Substance: ATORVASTATIN
     Indication: Ill-defined disorder
     Dosage: (DOSAGE TEXT: TAKE ONE DAILY)
     Route: 065
     Dates: start: 20231003
  3. BISOPROLOL [Concomitant]
     Active Substance: BISOPROLOL\BISOPROLOL FUMARATE
     Indication: Ill-defined disorder
     Dosage: (DOSAGE TEXT: TAKE ONE DAILY)
     Route: 065
     Dates: start: 20231003
  4. DIGOXIN [Concomitant]
     Active Substance: DIGOXIN
     Indication: Ill-defined disorder
     Dosage: (DOSAGE TEXT: TAKE ONE EACH MORNING)
     Route: 065
     Dates: start: 20231003
  5. FINASTERIDE [Concomitant]
     Active Substance: FINASTERIDE
     Indication: Ill-defined disorder
     Dosage: (DOSAGE TEXT: TAKE ONE TABLET DAILY)
     Route: 065
     Dates: start: 20231003
  6. FUROSEMIDE [Concomitant]
     Active Substance: FUROSEMIDE
     Indication: Ill-defined disorder
     Dosage: (DOSAGE TEXT: TAKE ONE EACH MORNING)
     Route: 065
     Dates: start: 20231003, end: 20240219
  7. METFORMIN [Concomitant]
     Active Substance: METFORMIN HYDROCHLORIDE
     Indication: Ill-defined disorder
     Dosage: (DOSAGE TEXT: 2 TO BE TAKEN TWICE DAILY)
     Route: 065
     Dates: start: 20231003
  8. RAMIPRIL [Concomitant]
     Active Substance: RAMIPRIL
     Indication: Ill-defined disorder
     Dosage: (DOSAGE TEXT: TAKE ONE DAILY PREFERABLY AT NIGHT)
     Route: 065
     Dates: start: 20231003
  9. RIVAROXABAN [Concomitant]
     Active Substance: RIVAROXABAN
     Indication: Ill-defined disorder
     Dosage: (DOSAGE TEXT: TAKE ONE DAILY)
     Route: 065
     Dates: start: 20231003
  10. VALPROATE SODIUM [Concomitant]
     Active Substance: VALPROATE SODIUM
     Indication: Ill-defined disorder
     Dosage: (DOSAGE TEXT: TAKE TAKE ONE TABLET TWICE A DAY)
     Route: 065
     Dates: start: 20231003
  11. TAMSULOSIN HYDROCHLORIDE [Concomitant]
     Active Substance: TAMSULOSIN HYDROCHLORIDE
     Indication: Ill-defined disorder
     Dosage: (DOSAGE TEXT: TAKE ONE TABLET DAILY)
     Route: 065
     Dates: start: 20231003

REACTIONS (1)
  - Hyponatraemia [Recovered/Resolved]

NARRATIVE: CASE EVENT DATE: 20240219
